FAERS Safety Report 9562678 (Version 2)
Quarter: 2013Q4

REPORT INFORMATION
  Report Type: Spontaneous
  Country: US (occurrence: US)
  Receive Date: 20130927
  Receipt Date: 20131018
  Transmission Date: 20140711
  Serious: No
  Sender: FDA-Public Use
  Company Number: US-PFIZER INC-2013277994

PATIENT
  Age: 60 Year
  Sex: Female

DRUGS (10)
  1. LYRICA [Suspect]
     Dosage: UNK, 100 (TID)
  2. PROVIGIL [Concomitant]
     Dosage: UNK
  3. METFORMIN [Concomitant]
     Dosage: UNK
  4. HUMALOG [Concomitant]
     Dosage: UNK
  5. ASA [Concomitant]
     Dosage: UNK
  6. VICODIN [Concomitant]
     Dosage: UNK
  7. BYDUREON [Concomitant]
     Dosage: UNK
  8. LISINOPRIL [Concomitant]
     Dosage: UNK
  9. LOVASTATIN [Concomitant]
     Dosage: UNK
  10. ZESTRIL [Concomitant]

REACTIONS (3)
  - Pain [Unknown]
  - Fatigue [Unknown]
  - Decreased activity [Unknown]
